FAERS Safety Report 7346477-3 (Version None)
Quarter: 2011Q1

REPORT INFORMATION
  Report Type: 
  Country: None (occurrence: None)
  Receive Date: 20110311
  Receipt Date: 20100909
  Transmission Date: 20110831
  Serious: Yes (Hospitalization, Other)
  Sender: FDA-Public Use
  Company Number: US-BAYER-201026187NA

PATIENT
  Sex: Female
  Weight: 52.154 kg

DRUGS (5)
  1. YAZ [Suspect]
     Indication: CONTRACEPTION
     Route: 048
     Dates: start: 20080301, end: 20081101
  2. YASMIN [Suspect]
     Indication: PRODUCT USED FOR UNKNOWN INDICATION
     Route: 048
     Dates: start: 20080301, end: 20081101
  3. IRON [Concomitant]
     Indication: ANAEMIA
  4. MULTIVITAMIN PREPARATION + MINERAL SUPPLEMENT [Concomitant]
  5. ASPIRIN [Concomitant]

REACTIONS (6)
  - VOMITING [None]
  - NAUSEA [None]
  - CHOLECYSTITIS CHRONIC [None]
  - CHOLELITHIASIS [None]
  - GASTROINTESTINAL DISORDER [None]
  - MUSCULOSKELETAL CHEST PAIN [None]
